FAERS Safety Report 21418223 (Version 2)
Quarter: 2022Q4

REPORT INFORMATION
  Report Type: Spontaneous
  Country: IN (occurrence: IN)
  Receive Date: 20221006
  Receipt Date: 20221010
  Transmission Date: 20230113
  Serious: Yes (Hospitalization)
  Sender: FDA-Public Use
  Company Number: IN-MYLANLABS-2022M1111396

PATIENT
  Age: 37 Year
  Sex: Female

DRUGS (5)
  1. FLUDARABINE [Suspect]
     Active Substance: FLUDARABINE PHOSPHATE
     Indication: Acute myeloid leukaemia
     Dosage: 30 MILLIGRAM/SQ. METER, CYCLE
     Route: 065
  2. CYTARABINE [Suspect]
     Active Substance: CYTARABINE
     Indication: Acute myeloid leukaemia
     Dosage: 2 GRAM PER SQUARE METRE, CYCLE
     Route: 065
  3. CYTARABINE [Suspect]
     Active Substance: CYTARABINE
     Dosage: 100 MILLIGRAM/SQ. METER, CYCLE (SECOND CYCLE)
     Route: 065
  4. DAUNORUBICIN [Suspect]
     Active Substance: DAUNORUBICIN
     Indication: Acute myeloid leukaemia
     Dosage: 60 MILLIGRAM/SQ. METER, CYCLE
     Route: 065
  5. VENETOCLAX [Suspect]
     Active Substance: VENETOCLAX
     Indication: Acute myeloid leukaemia
     Dosage: 100 MILLIGRAM, QD
     Route: 065

REACTIONS (2)
  - Pneumocystis jirovecii pneumonia [Recovered/Resolved]
  - Neutropenia [Unknown]
